FAERS Safety Report 10076658 (Version 1)
Quarter: 2014Q2

REPORT INFORMATION
  Report Type: Spontaneous
  Country: US (occurrence: US)
  Receive Date: 20140414
  Receipt Date: 20140414
  Transmission Date: 20141212
  Serious: Yes (Other)
  Sender: FDA-Public Use
  Company Number: US-TEVA-475342USA

PATIENT
  Sex: Female

DRUGS (1)
  1. AMPHETAMINE W/DEXTROAMPHETAMINE [Suspect]
     Dosage: 60 MILLIGRAM DAILY;

REACTIONS (6)
  - Mental impairment [Unknown]
  - Panic attack [Unknown]
  - Anxiety [Unknown]
  - Nervousness [Unknown]
  - Hypersensitivity [Unknown]
  - Therapeutic response changed [Unknown]
